FAERS Safety Report 8776081 (Version 3)
Quarter: 2014Q2

REPORT INFORMATION
  Report Type: Spontaneous
  Country: US (occurrence: US)
  Receive Date: 20120910
  Receipt Date: 20140520
  Transmission Date: 20141212
  Serious: No
  Sender: FDA-Public Use
  Company Number: US-PFIZER INC-2012221215

PATIENT
  Age: 47 Year
  Sex: Female

DRUGS (11)
  1. LYRICA [Suspect]
     Dosage: UNK
  2. HEPARIN [Suspect]
     Dosage: UNK
  3. IBUPROFEN [Suspect]
     Dosage: UNK
  4. MORPHINE SULFATE [Suspect]
     Dosage: UNK
  5. OXYCODONE HYDROCHLORIDE [Suspect]
     Dosage: UNK
  6. LOVENOX [Suspect]
     Dosage: UNK
  7. ULTRAM [Suspect]
     Dosage: UNK
  8. DIPHTHERIA AND TETANUS TOXOIDS [Suspect]
     Dosage: UNK
  9. ERYTHROMYCIN [Suspect]
     Dosage: UNK
  10. ACETAMINOPHEN [Suspect]
  11. TYLENOL [Suspect]
     Dosage: UNK

REACTIONS (1)
  - Drug hypersensitivity [Unknown]
